FAERS Safety Report 6336517-2 (Version None)
Quarter: 2009Q3

REPORT INFORMATION
  Report Type: 
  Country: None (occurrence: None)
  Receive Date: 20090831
  Receipt Date: 20090831
  Transmission Date: 20100115
  Serious: Yes (Hospitalization)
  Sender: FDA-Public Use
  Company Number: None

PATIENT
  Age: 67 Year
  Sex: Male
  Weight: 70 kg

DRUGS (1)
  1. SODIUM POLYSTYRENE SULFONATE [Suspect]
     Indication: HYPERKALAEMIA
     Dosage: 15 GM BID PO
     Route: 048
     Dates: start: 20090731, end: 20090821

REACTIONS (4)
  - DYSPNOEA EXERTIONAL [None]
  - FLUID OVERLOAD [None]
  - OEDEMA PERIPHERAL [None]
  - SODIUM RETENTION [None]
